FAERS Safety Report 25281212 (Version 1)
Quarter: 2025Q2

REPORT INFORMATION
  Report Type: Spontaneous
  Country: US (occurrence: US)
  Receive Date: 20250508
  Receipt Date: 20250508
  Transmission Date: 20250716
  Serious: Yes (Other)
  Sender: JIANGSU HENGRUI
  Company Number: US-JIANGSU HENGRUI PHARMACEUTICALS CO., LTD.-H2025001202855

PATIENT

DRUGS (5)
  1. CYCLOPHOSPHAMIDE [Suspect]
     Active Substance: CYCLOPHOSPHAMIDE
     Indication: Still^s disease
  2. TACROLIMUS [Suspect]
     Active Substance: TACROLIMUS
     Indication: Still^s disease
  3. ILARIS [Suspect]
     Active Substance: CANAKINUMAB
     Indication: Still^s disease
  4. RUXOLITINIB [Suspect]
     Active Substance: RUXOLITINIB
     Indication: Still^s disease
  5. EMAPALUMAB [Suspect]
     Active Substance: EMAPALUMAB
     Indication: Still^s disease

REACTIONS (2)
  - Interleukin level increased [Unknown]
  - Product use in unapproved indication [Unknown]
